FAERS Safety Report 24819781 (Version 1)
Quarter: 2025Q1

REPORT INFORMATION
  Report Type: Spontaneous
  Country: CN (occurrence: CN)
  Receive Date: 20250108
  Receipt Date: 20250108
  Transmission Date: 20250409
  Serious: Yes (Hospitalization)
  Sender: PURDUE
  Company Number: CN-NAPPMUNDI-GBR-2024-0122538

PATIENT
  Age: 86 Year
  Sex: Female
  Weight: 42 kg

DRUGS (1)
  1. OXYCODONE HYDROCHLORIDE [Suspect]
     Active Substance: OXYCODONE HYDROCHLORIDE
     Indication: Analgesic therapy
     Dosage: 60 MILLIGRAM, BID
     Route: 048
     Dates: start: 20240902

REACTIONS (15)
  - Vomiting [Recovering/Resolving]
  - Nausea [Recovering/Resolving]
  - Abdominal distension [Recovering/Resolving]
  - Chest discomfort [Unknown]
  - Tachypnoea [Unknown]
  - Palpitations [Unknown]
  - Decreased appetite [Unknown]
  - Asthenia [Unknown]
  - Abdominal pain [Unknown]
  - Abdominal pain lower [Unknown]
  - Arthralgia [Unknown]
  - Dysuria [Unknown]
  - Infrequent bowel movements [Unknown]
  - Poor quality sleep [Unknown]
  - Inadequate analgesia [Unknown]

NARRATIVE: CASE EVENT DATE: 20240101
